FAERS Safety Report 6530828-3 (Version None)
Quarter: 2010Q1

REPORT INFORMATION
  Report Type: 
  Country: None (occurrence: None)
  Receive Date: 20100108
  Receipt Date: 20090514
  Transmission Date: 20100710
  Serious: No
  Sender: FDA-Public Use
  Company Number: A0775069A

PATIENT
  Age: 40 Year
  Sex: Male

DRUGS (2)
  1. LOVAZA [Suspect]
     Dosage: 1G TWICE PER DAY
     Route: 048
     Dates: start: 20090215, end: 20090322
  2. MAXAIR [Concomitant]

REACTIONS (3)
  - ABDOMINAL DISCOMFORT [None]
  - ERUCTATION [None]
  - PRODUCT QUALITY ISSUE [None]
